FAERS Safety Report 16848810 (Version 1)
Quarter: 2019Q3

REPORT INFORMATION
  Report Type: Report from Study
  Country: GB (occurrence: GB)
  Receive Date: 20190925
  Receipt Date: 20190925
  Transmission Date: 20191005
  Serious: Yes (Other)
  Sender: FDA-Public Use
  Company Number: GB-IPSEN BIOPHARMACEUTICALS, INC.-2019-08856

PATIENT
  Sex: Female

DRUGS (1)
  1. SOMATULINE AUTOGEL 120MG [Suspect]
     Active Substance: LANREOTIDE ACETATE
     Indication: NEUROENDOCRINE TUMOUR
     Dosage: 120 MG/0.5 ML
     Route: 065

REACTIONS (6)
  - Urinary tract infection [Unknown]
  - Injection site mass [Not Recovered/Not Resolved]
  - Mouth ulceration [Unknown]
  - Lower respiratory tract infection [Unknown]
  - Renal abscess [Unknown]
  - Injection site bruising [Unknown]
